FAERS Safety Report 8594173-7 (Version None)
Quarter: 2012Q3

REPORT INFORMATION
  Report Type: 
  Country: None (occurrence: None)
  Receive Date: 20120814
  Receipt Date: 20120809
  Transmission Date: 20120928
  Serious: Yes (Hospitalization, Other)
  Sender: FDA-Public Use
  Company Number: PHHY2012US069497

PATIENT
  Age: 79 Year
  Sex: Male

DRUGS (3)
  1. MIRTAZAPINE [Concomitant]
  2. ANTIHISTAMINE ALLERGY RELIEF [Concomitant]
     Indication: HYPERSENSITIVITY
  3. ASPIRIN [Suspect]
     Indication: ARTHRITIS
     Dosage: 2 DF, Q6H
     Route: 048
     Dates: start: 19870101, end: 20110101

REACTIONS (7)
  - ARTHRITIS [None]
  - CHAPPED LIPS [None]
  - INCORRECT DRUG ADMINISTRATION DURATION [None]
  - PNEUMONIA [None]
  - INCORRECT DOSE ADMINISTERED [None]
  - MYOCARDIAL INFARCTION [None]
  - EMPHYSEMA [None]
